FAERS Safety Report 8791571 (Version 2)
Quarter: 2012Q4

REPORT INFORMATION
  Report Type: Spontaneous
  Country: DE (occurrence: None)
  Receive Date: 20120913
  Receipt Date: 20120925
  Transmission Date: 20130627
  Serious: Yes (Hospitalization, Other)
  Sender: FDA-Public Use
  Company Number: EU-2012-10054

PATIENT
  Sex: Male
  Weight: 85 kg

DRUGS (11)
  1. SAMSCA (TOLVAPTAN) TABLET [Suspect]
     Indication: HYPONATREMIA
     Route: 048
     Dates: start: 20110714
  2. SAMSCA (TOLVAPTAN) TABLET [Suspect]
     Route: 048
     Dates: start: 20110714
  3. SODIUM CAPSULE [Concomitant]
  4. MOXONIDIN (MOXONIDINE) [Concomitant]
  5. ASA (ACETYLSALICYLIC ACID) [Concomitant]
  6. VALPROIC ACID (VALPROATE SODIUM) [Concomitant]
  7. SIMVASTATIN (SIMVASTATIN) [Concomitant]
  8. FELODIPIN (FELODIPIN) [Concomitant]
  9. RAMIPRIL (RAMIPRIL) [Concomitant]
  10. BISOPROLOL (BISOPROLOL) [Concomitant]
  11. BISOPROLOL (BISOPROLOL) [Concomitant]

REACTIONS (7)
  - Pleural neoplasm [None]
  - Lung neoplasm [None]
  - Adrenal neoplasm [None]
  - Angioedema [None]
  - Orthostatic hypotension [None]
  - Constipation [None]
  - Wrong technique in drug usage process [None]
